FAERS Safety Report 22338863 (Version 1)
Quarter: 2023Q2

REPORT INFORMATION
  Report Type: Other
  Country: US (occurrence: None)
  Receive Date: 20230518
  Receipt Date: 20230518
  Transmission Date: 20230722
  Serious: Yes (Hospitalization)
  Sender: FDA-Public Use
  Company Number: US-ROCHE-3350072

PATIENT
  Age: 65 Year
  Sex: Male

DRUGS (3)
  1. OCREVUS [Suspect]
     Active Substance: OCRELIZUMAB
     Indication: Multiple sclerosis
     Route: 042
     Dates: start: 20200622
  2. OCREVUS [Suspect]
     Active Substance: OCRELIZUMAB
     Route: 042
  3. LEVETIRACETAM [Concomitant]
     Active Substance: LEVETIRACETAM

REACTIONS (2)
  - Rhinovirus infection [Recovered/Resolved]
  - Urinary tract infection [Recovered/Resolved]
